FAERS Safety Report 9700438 (Version 1)
Quarter: 2013Q4

REPORT INFORMATION
  Report Type: Spontaneous
  Country: IT (occurrence: None)
  Receive Date: 20131119
  Receipt Date: 20131119
  Transmission Date: 20140711
  Serious: Yes (Hospitalization)
  Sender: FDA-Public Use
  Company Number: FK201304731

PATIENT
  Age: 68 Year
  Sex: Male

DRUGS (4)
  1. IRINOTECAN [Suspect]
     Indication: PANCREATIC CARCINOMA
     Dosage: CYCLICAL , INTRAVENOUS
     Route: 042
  2. FLUOROURACILE [Suspect]
     Dosage: CYCLICAL
     Route: 042
  3. OXALIPLATIN [Suspect]
     Dosage: CYCLICAL ?
     Route: 042
  4. NEULASTA (PEGFILGRASTIM) [Concomitant]

REACTIONS (10)
  - Diarrhoea [None]
  - Dysphagia [None]
  - Hyponatraemia [None]
  - Nausea [None]
  - Neutropenia [None]
  - Thrombocytopenia [None]
  - Heart rate increased [None]
  - Haematocrit decreased [None]
  - Haemoglobin decreased [None]
  - Blood glucose increased [None]
